FAERS Safety Report 7604855-9 (Version None)
Quarter: 2011Q3

REPORT INFORMATION
  Report Type: 
  Country: None (occurrence: None)
  Receive Date: 20110712
  Receipt Date: 20110629
  Transmission Date: 20111222
  Serious: Yes (Hospitalization, Other)
  Sender: FDA-Public Use
  Company Number: FR-RB-029814-11

PATIENT
  Sex: Male
  Weight: 63 kg

DRUGS (7)
  1. METAZOLE [Concomitant]
     Indication: HIV INFECTION
     Route: 048
     Dates: start: 20050101
  2. ALDACTONE [Concomitant]
     Indication: HIV INFECTION
     Route: 048
     Dates: start: 20050101
  3. SUBOXONE [Suspect]
     Indication: DEPENDENCE
     Route: 048
     Dates: start: 20101229, end: 20110628
  4. ZIDOVUDINE [Concomitant]
     Indication: HIV INFECTION
     Route: 048
     Dates: start: 20050101
  5. REYATAZ [Concomitant]
     Indication: HIV INFECTION
     Route: 048
     Dates: start: 20050101
  6. ABACAVIR [Concomitant]
     Indication: HIV INFECTION
     Route: 048
     Dates: start: 20050101
  7. LAMIVUDINE [Concomitant]
     Indication: HIV INFECTION
     Route: 048
     Dates: start: 20050101

REACTIONS (1)
  - HEPATIC NEOPLASM MALIGNANT [None]
